FAERS Safety Report 16339465 (Version 4)
Quarter: 2021Q4

REPORT INFORMATION
  Report Type: Spontaneous
  Country: US (occurrence: US)
  Receive Date: 20190521
  Receipt Date: 20211122
  Transmission Date: 20220303
  Serious: No
  Sender: FDA-Public Use
  Company Number: US-SA-2019SA136679

PATIENT
  Sex: Male
  Weight: 70.748 kg

DRUGS (12)
  1. DUPIXENT [Suspect]
     Active Substance: DUPILUMAB
     Indication: Dermatitis atopic
     Dosage: 300 MG, QOW
     Route: 058
     Dates: start: 20190404
  2. DUPIXENT [Suspect]
     Active Substance: DUPILUMAB
     Indication: Illness
  3. PIMECROLIMUS [Concomitant]
     Active Substance: PIMECROLIMUS
  4. TIMOLOL MALEATE [Concomitant]
     Active Substance: TIMOLOL MALEATE
  5. PROAIR HFA [Concomitant]
     Active Substance: ALBUTEROL SULFATE
  6. SIMVASTATIN [Concomitant]
     Active Substance: SIMVASTATIN
  7. ASPIRIN [Concomitant]
     Active Substance: ASPIRIN
  8. TRIAMCINOLONE ACETONIDE [Concomitant]
     Active Substance: TRIAMCINOLONE ACETONIDE
  9. ALBUTEROL SULFATE [Concomitant]
     Active Substance: ALBUTEROL SULFATE
     Dosage: UNK
  10. ALPHAGAN P [Concomitant]
     Active Substance: BRIMONIDINE TARTRATE
  11. ATORVASTATIN CALCIUM [Concomitant]
     Active Substance: ATORVASTATIN CALCIUM
  12. LOSARTAN POTASSIUM [Concomitant]
     Active Substance: LOSARTAN POTASSIUM

REACTIONS (10)
  - Eye allergy [Recovering/Resolving]
  - Ocular hyperaemia [Recovered/Resolved]
  - Eye pruritus [Recovered/Resolved]
  - Lacrimation increased [Recovering/Resolving]
  - Condition aggravated [Recovering/Resolving]
  - Eye inflammation [Unknown]
  - Eczema [Unknown]
  - Pruritus [Unknown]
  - Product use in unapproved indication [Unknown]
  - Intentional product use issue [Unknown]

NARRATIVE: CASE EVENT DATE: 20200601
